FAERS Safety Report 20808337 (Version 1)
Quarter: 2022Q2

REPORT INFORMATION
  Report Type: Spontaneous
  Country: IT (occurrence: IT)
  Receive Date: 20220510
  Receipt Date: 20220510
  Transmission Date: 20220721
  Serious: Yes (Other)
  Sender: FDA-Public Use
  Company Number: IT-PFM-2022-03055

PATIENT
  Age: 14 Year
  Sex: Male
  Weight: 58 kg

DRUGS (3)
  1. ISOTRETINOIN [Suspect]
     Active Substance: ISOTRETINOIN
     Indication: Acne
     Dosage: 5 MILLIGRAM, QD (5 MG, PER DAY)
     Route: 048
     Dates: start: 202001, end: 202006
  2. ISOTRETINOIN [Suspect]
     Active Substance: ISOTRETINOIN
     Indication: Acne
     Dosage: 30 MILLIGRAM, QD (30 MG, PER DAY)
     Route: 048
     Dates: end: 201907
  3. ISOTRETINOIN [Suspect]
     Active Substance: ISOTRETINOIN
     Dosage: 20 MILLIGRAM, QD (20 MG, PER DAY)
     Route: 048
     Dates: start: 201810

REACTIONS (5)
  - Growth failure [Not Recovered/Not Resolved]
  - Epiphyseal disorder [Not Recovered/Not Resolved]
  - Bone disorder [Not Recovered/Not Resolved]
  - Vision blurred [Recovered/Resolved]
  - Alopecia [Recovered/Resolved]
